APPROVED DRUG PRODUCT: ABITREXATE
Active Ingredient: METHOTREXATE SODIUM
Strength: EQ 100MG BASE/VIAL
Dosage Form/Route: INJECTABLE;INJECTION
Application: A089355 | Product #001
Applicant: ABIC LTD
Approved: Jul 17, 1987 | RLD: No | RS: No | Type: DISCN